FAERS Safety Report 15350159 (Version 1)
Quarter: 2018Q3

REPORT INFORMATION
  Report Type: Report from Study
  Country: RU (occurrence: RU)
  Receive Date: 20180905
  Receipt Date: 20180905
  Transmission Date: 20181010
  Serious: Yes (Life-Threatening)
  Sender: FDA-Public Use
  Company Number: PHHO2012RU009593

PATIENT
  Age: 48 Year
  Sex: Female
  Weight: 68 kg

DRUGS (6)
  1. DOCETAXEL. [Suspect]
     Active Substance: DOCETAXEL
     Indication: CHEMOTHERAPY
     Dosage: 855 MG, QD
     Route: 042
     Dates: start: 20120618
  2. DOXORUBICIN [Suspect]
     Active Substance: DOXORUBICIN
     Indication: CHEMOTHERAPY
     Dosage: 86 MG, QD
     Route: 042
     Dates: start: 20120618
  3. CYCLOPHOSPHAMIDE. [Suspect]
     Active Substance: CYCLOPHOSPHAMIDE
     Indication: CHEMOTHERAPY
     Dosage: 128 MG, QD
     Route: 042
     Dates: start: 20120618
  4. NEUPOGEN [Suspect]
     Active Substance: FILGRASTIM
     Indication: DRUG LEVEL
     Dosage: UNK
     Route: 058
     Dates: start: 20120619
  5. DEXAMETHASONE. [Concomitant]
     Active Substance: DEXAMETHASONE
     Indication: PREMEDICATION
     Dosage: 8 MG, BID
     Route: 048
     Dates: start: 20120617
  6. ONDANSETRON [Concomitant]
     Active Substance: ONDANSETRON
     Indication: PROPHYLAXIS OF NAUSEA AND VOMITING
     Dosage: 8 MG, QD
     Route: 042
     Dates: start: 20120618

REACTIONS (1)
  - Febrile neutropenia [Recovered/Resolved]

NARRATIVE: CASE EVENT DATE: 20120625
